FAERS Safety Report 21218816 (Version 2)
Quarter: 2022Q3

REPORT INFORMATION
  Report Type: Spontaneous
  Country: RO (occurrence: RO)
  Receive Date: 20220816
  Receipt Date: 20220921
  Transmission Date: 20221027
  Serious: Yes (Other)
  Sender: FDA-Public Use
  Company Number: RO-009507513-2208ROU005258

PATIENT
  Age: 32 Year
  Sex: Female

DRUGS (1)
  1. PEMBROLIZUMAB [Suspect]
     Active Substance: PEMBROLIZUMAB
     Indication: Malignant melanoma
     Dosage: DOSE: 200 MG; FREQUENCY: 21 DAYS
     Dates: start: 202005, end: 202104

REACTIONS (2)
  - Hyperbilirubinaemia [Unknown]
  - Asthenia [Unknown]
